FAERS Safety Report 10085123 (Version 1)
Quarter: 2014Q2

REPORT INFORMATION
  Report Type: Spontaneous
  Country: US (occurrence: US)
  Receive Date: 20140417
  Receipt Date: 20140417
  Transmission Date: 20141212
  Serious: No
  Sender: FDA-Public Use
  Company Number: US-PFIZER INC-2014105856

PATIENT
  Age: 65 Year
  Sex: Female
  Weight: 88.89 kg

DRUGS (3)
  1. EFFEXOR XR [Suspect]
     Indication: BIPOLAR DISORDER
     Dosage: 200 MG, 3X/DAY
     Route: 048
     Dates: start: 2013
  2. LORAZEPAM [Suspect]
     Indication: BIPOLAR DISORDER
     Dosage: UNK
     Dates: start: 2013
  3. LISINOPRIL [Concomitant]
     Indication: HYPERTENSION
     Dosage: 10 MG, DAILY

REACTIONS (1)
  - Drug ineffective for unapproved indication [Unknown]
